FAERS Safety Report 13304512 (Version 1)
Quarter: 2017Q1

REPORT INFORMATION
  Report Type: Spontaneous
  Country: US (occurrence: US)
  Receive Date: 20170307
  Receipt Date: 20170307
  Transmission Date: 20170428
  Serious: No
  Sender: FDA-Public Use
  Company Number: None

PATIENT
  Age: 69 Year
  Sex: Female

DRUGS (1)
  1. RIBASPHERE RIBAPAK [Suspect]
     Active Substance: RIBAVIRIN

REACTIONS (3)
  - Asthenia [None]
  - Constipation [None]
  - Vision blurred [None]

NARRATIVE: CASE EVENT DATE: 20170306
